FAERS Safety Report 25191353 (Version 1)
Quarter: 2025Q2

REPORT INFORMATION
  Report Type: Spontaneous
  Country: GB (occurrence: GB)
  Receive Date: 20250411
  Receipt Date: 20250411
  Transmission Date: 20250716
  Serious: Yes (Disabling, Other)
  Sender: AUROBINDO
  Company Number: GB-MHRA-MED-202503291654148470-FKWNB

PATIENT
  Age: 36 Year
  Weight: 86 kg

DRUGS (1)
  1. METRONIDAZOLE [Suspect]
     Active Substance: METRONIDAZOLE
     Indication: Giardiasis
     Dosage: UNK, 3 TIMES A DAY (3 TIMES DAILY FOR 5 DAYS THEN 7 DAYS)
     Route: 065
     Dates: start: 20250211

REACTIONS (2)
  - Depression [Not Recovered/Not Resolved]
  - Medication error [Unknown]

NARRATIVE: CASE EVENT DATE: 20250215
